FAERS Safety Report 10381852 (Version 2)
Quarter: 2014Q3

REPORT INFORMATION
  Report Type: Spontaneous
  Country: CA (occurrence: CA)
  Receive Date: 20140813
  Receipt Date: 20140827
  Transmission Date: 20150326
  Serious: Yes (Other)
  Sender: FDA-Public Use
  Company Number: CA-GLAXOSMITHKLINE-A1084163A

PATIENT
  Age: 63 Year
  Sex: Female

DRUGS (3)
  1. TAFINLAR [Suspect]
     Active Substance: DABRAFENIB MESYLATE
     Indication: METASTATIC MALIGNANT MELANOMA
     Dosage: 300MG PER DAY
     Route: 065
     Dates: start: 20140730
  2. PERCOCET [Suspect]
     Active Substance: ACETAMINOPHEN\OXYCODONE HYDROCHLORIDE
  3. SENOKOT [Concomitant]
     Active Substance: SENNOSIDES

REACTIONS (9)
  - Neoplasm [Unknown]
  - Chills [Unknown]
  - Constipation [Unknown]
  - Peripheral coldness [Unknown]
  - Fatigue [Unknown]
  - Pruritus [Unknown]
  - Tumour pain [Recovered/Resolved]
  - Nausea [Unknown]
  - Dry skin [Unknown]

NARRATIVE: CASE EVENT DATE: 20140730
